FAERS Safety Report 9149809 (Version 1)
Quarter: 2013Q1

REPORT INFORMATION
  Report Type: Spontaneous
  Country: US (occurrence: US)
  Receive Date: 20130308
  Receipt Date: 20130308
  Transmission Date: 20140127
  Serious: No
  Sender: FDA-Public Use
  Company Number: US-ENDO PHARMACEUTICALS INC.-OPCR20120484

PATIENT
  Sex: Male
  Weight: 84.44 kg

DRUGS (4)
  1. OPANA ER [Suspect]
     Indication: PAIN IN EXTREMITY
     Route: 048
     Dates: start: 201204, end: 2012
  2. OPANA ER [Suspect]
     Indication: ARTHRALGIA
  3. OPANA ER [Suspect]
     Indication: ARTHRITIS
  4. OPANA ER [Concomitant]

REACTIONS (4)
  - Balance disorder [Unknown]
  - Sluggishness [Unknown]
  - Dizziness [Unknown]
  - Vomiting [Unknown]
